FAERS Safety Report 7415701-0 (Version None)
Quarter: 2011Q2

REPORT INFORMATION
  Report Type: 
  Country: None (occurrence: None)
  Receive Date: 20110406
  Receipt Date: 20110322
  Transmission Date: 20111010
  Serious: Yes (Hospitalization)
  Sender: FDA-Public Use
  Company Number: 2011SP013062

PATIENT
  Sex: Female

DRUGS (3)
  1. ZOLOFT [Concomitant]
  2. PEG-INTRON [Suspect]
     Indication: HEPATITIS C
     Dosage: SC
     Route: 058
     Dates: start: 20110120
  3. ALPRAZOLAM [Concomitant]

REACTIONS (7)
  - VOMITING [None]
  - DIZZINESS [None]
  - DEPRESSION [None]
  - PALLOR [None]
  - ASTHENIA [None]
  - CRYING [None]
  - DRY SKIN [None]
